FAERS Safety Report 18916406 (Version 1)
Quarter: 2021Q1

REPORT INFORMATION
  Report Type: Spontaneous
  Country: US (occurrence: US)
  Receive Date: 20210219
  Receipt Date: 20210219
  Transmission Date: 20210420
  Serious: Yes (Death)
  Sender: FDA-Public Use
  Company Number: None

PATIENT
  Age: 56 Year
  Sex: Female
  Weight: 104.1 kg

DRUGS (10)
  1. INSULIN GLARGINE [Concomitant]
     Active Substance: INSULIN GLARGINE
  2. QUINAPRIL/HYDROCHLOROTHIAZIDE [Concomitant]
     Active Substance: HYDROCHLOROTHIAZIDE\QUINAPRIL HYDROCHLORIDE
  3. SUMATRIPTAN. [Concomitant]
     Active Substance: SUMATRIPTAN
  4. METFORMIN [Concomitant]
     Active Substance: METFORMIN HYDROCHLORIDE
  5. VENLAFAXINE [Concomitant]
     Active Substance: VENLAFAXINE HYDROCHLORIDE
  6. ELETRIPTAN. [Concomitant]
     Active Substance: ELETRIPTAN
  7. ICOSAPENT [Concomitant]
     Active Substance: ICOSAPENT
  8. AIMOVIG [Suspect]
     Active Substance: ERENUMAB-AOOE
     Indication: MIGRAINE
     Dosage: ?          OTHER FREQUENCY:MONTHLY;?
     Route: 058
  9. ERGOCALCIFEROL. [Concomitant]
     Active Substance: ERGOCALCIFEROL
  10. SITAGLIPTIN [Concomitant]
     Active Substance: SITAGLIPTIN

REACTIONS (7)
  - Intestinal ischaemia [None]
  - Faecaloma [None]
  - Acute kidney injury [None]
  - Anaemia [None]
  - Cardiac arrest [None]
  - Septic shock [None]
  - Coagulopathy [None]

NARRATIVE: CASE EVENT DATE: 20210211
